FAERS Safety Report 14745409 (Version 1)
Quarter: 2018Q2

REPORT INFORMATION
  Report Type: Spontaneous
  Country: AR (occurrence: AR)
  Receive Date: 20180411
  Receipt Date: 20180411
  Transmission Date: 20180711
  Serious: Yes (Death)
  Sender: FDA-Public Use
  Company Number: AR-BAYER-2018-069882

PATIENT
  Age: 79 Year
  Sex: Male

DRUGS (1)
  1. REGORAFENIB. [Suspect]
     Active Substance: REGORAFENIB
     Indication: HEPATOCELLULAR CARCINOMA
     Dosage: 4 DF, QD
     Route: 048
     Dates: start: 201703, end: 20180314

REACTIONS (1)
  - Hepatocellular carcinoma [Fatal]
